FAERS Safety Report 22133432 (Version 1)
Quarter: 2023Q1

REPORT INFORMATION
  Report Type: Report from Study
  Country: BG (occurrence: BG)
  Receive Date: 20230324
  Receipt Date: 20230324
  Transmission Date: 20230418
  Serious: Yes (Hospitalization)
  Sender: FDA-Public Use
  Company Number: BG-NOVOPROD-1039545

PATIENT
  Age: 52 Year
  Sex: Female
  Weight: 89 kg

DRUGS (2)
  1. SEMAGLUTIDE [Suspect]
     Active Substance: SEMAGLUTIDE
     Indication: Type 2 diabetes mellitus
     Dosage: 2.4,MG ONCE PER WEEK
     Route: 058
     Dates: start: 20211207, end: 20220726
  2. INVESTIGATIONAL PRODUCT [Suspect]
     Active Substance: INVESTIGATIONAL PRODUCT
     Indication: Type 2 diabetes mellitus
     Dosage: 21.6 MG,ONCE PER WEEK
     Route: 058
     Dates: start: 20211207, end: 20220726

REACTIONS (1)
  - Cholecystitis chronic [Recovered/Resolved]

NARRATIVE: CASE EVENT DATE: 20221005
